FAERS Safety Report 9518719 (Version 1)
Quarter: 2013Q1

REPORT INFORMATION
  Report Type: Spontaneous
  Country: US (occurrence: None)
  Receive Date: 20130305
  Receipt Date: 20130305
  Transmission Date: 20140127
  Serious: No
  Sender: FDA-Public Use
  Company Number: 163-21880-12121130

PATIENT
  Age: 76 Year
  Sex: Male
  Weight: 85.73 kg

DRUGS (4)
  1. REVLIMID [Suspect]
     Indication: MYELODYSPLASTIC SYNDROME
     Dosage: 10MG, 1 IN 1D, PO
     Route: 048
     Dates: start: 20121106, end: 20121201
  2. CALCIUM CITRATE (CALCIUM CITRATE) [Concomitant]
  3. GLUCOSAMINE CHONDROITIN (GLUCOSAMINE W/CHONDROITIN SULFATE) [Concomitant]
  4. PANTOPRAZOLE SODIUM (PANTOPRAZOLE SODIUM) [Concomitant]

REACTIONS (2)
  - Red blood cell count decreased [None]
  - White blood cell count decreased [None]
